FAERS Safety Report 17940600 (Version 2)
Quarter: 2020Q3

REPORT INFORMATION
  Report Type: Spontaneous
  Country: JP (occurrence: JP)
  Receive Date: 20200624
  Receipt Date: 20200707
  Transmission Date: 20201103
  Serious: Yes (Hospitalization)
  Sender: FDA-Public Use
  Company Number: JP-JNJFOC-20200430810

PATIENT
  Age: 68 Year
  Sex: Female

DRUGS (3)
  1. HALOMONTH [Suspect]
     Active Substance: HALOPERIDOL DECANOATE
     Indication: SCHIZOPHRENIA
     Route: 030
  2. HALOMONTH [Suspect]
     Active Substance: HALOPERIDOL DECANOATE
     Route: 030
  3. HALOMONTH [Suspect]
     Active Substance: HALOPERIDOL DECANOATE
     Route: 030
     Dates: start: 2020

REACTIONS (5)
  - Prescribed overdose [Recovered/Resolved]
  - Refusal of treatment by patient [Unknown]
  - Inappropriate schedule of product administration [Recovered/Resolved]
  - Hospitalisation [Unknown]
  - Off label use [Recovered/Resolved]

NARRATIVE: CASE EVENT DATE: 2020
